FAERS Safety Report 5219879-9 (Version None)
Quarter: 2007Q1

REPORT INFORMATION
  Report Type: 
  Country: None (occurrence: None)
  Receive Date: 20070125
  Receipt Date: 20070118
  Transmission Date: 20070707
  Serious: Yes (Other)
  Sender: FDA-Public Use
  Company Number: US-PFIZER INC-2007004960

PATIENT
  Age: 27 Year
  Sex: Female

DRUGS (2)
  1. MISOPROSTOL [Suspect]
     Indication: ABORTION INDUCED
     Route: 067
  2. METHOTREXATE [Suspect]
     Indication: ABORTION INDUCED
     Route: 048

REACTIONS (2)
  - INDUCED ABORTION FAILED [None]
  - PRE-ECLAMPSIA [None]
